FAERS Safety Report 25630703 (Version 3)
Quarter: 2025Q4

REPORT INFORMATION
  Report Type: Spontaneous
  Country: US (occurrence: US)
  Receive Date: 20250801
  Receipt Date: 20251113
  Transmission Date: 20260117
  Serious: Yes (Other)
  Sender: SANOFI AVENTIS
  Company Number: US-SA-2025SA223104

PATIENT
  Age: 55 Year
  Sex: Female

DRUGS (3)
  1. DUPIXENT [Suspect]
     Active Substance: DUPILUMAB
     Indication: Urticaria
     Dosage: 600 MG, 1X
     Route: 058
  2. DUPIXENT [Suspect]
     Active Substance: DUPILUMAB
     Dosage: 300 MG, QOW
     Route: 058
  3. XOLAIR [Suspect]
     Active Substance: OMALIZUMAB
     Dosage: UNK
     Dates: start: 2024, end: 2025

REACTIONS (14)
  - Anaphylactic reaction [Unknown]
  - Illness [Unknown]
  - Urticaria [Unknown]
  - Pruritus [Unknown]
  - Swelling [Unknown]
  - Hypersensitivity [Unknown]
  - Throat tightness [Unknown]
  - Abdominal pain upper [Unknown]
  - Dyspnoea [Unknown]
  - Erythema [Unknown]
  - Dysphagia [Recovered/Resolved]
  - Dysphonia [Recovered/Resolved]
  - Salivary hyposecretion [Recovered/Resolved]
  - Product use in unapproved indication [Unknown]

NARRATIVE: CASE EVENT DATE: 20250101
